FAERS Safety Report 7123685-8 (Version None)
Quarter: 2010Q4

REPORT INFORMATION
  Report Type: 
  Country: None (occurrence: None)
  Receive Date: 20101125
  Receipt Date: 20101111
  Transmission Date: 20110411
  Serious: Yes (Other)
  Sender: FDA-Public Use
  Company Number: PHHY2010DE62467

PATIENT
  Sex: Male

DRUGS (2)
  1. ACLASTA [Suspect]
     Indication: OSTEOPOROSIS
     Dosage: 5 MG
     Route: 042
     Dates: start: 20100914, end: 20100914
  2. ACLASTA [Suspect]
     Indication: LUMBAR VERTEBRAL FRACTURE

REACTIONS (20)
  - ABNORMAL SENSATION IN EYE [None]
  - ARTHRALGIA [None]
  - CHILLS [None]
  - CONJUNCTIVITIS [None]
  - DYSURIA [None]
  - ESCHERICHIA TEST POSITIVE [None]
  - EYE DISORDER [None]
  - EYE PAIN [None]
  - HAEMATURIA [None]
  - INFLUENZA LIKE ILLNESS [None]
  - LACRIMATION INCREASED [None]
  - NITRITE URINE PRESENT [None]
  - OCULAR HYPERAEMIA [None]
  - PAIN IN EXTREMITY [None]
  - PHOTOPHOBIA [None]
  - PYREXIA [None]
  - RENAL PAIN [None]
  - SENSITIVITY OF TEETH [None]
  - TOOTHACHE [None]
  - URINARY TRACT INFECTION [None]
